FAERS Safety Report 26078084 (Version 1)
Quarter: 2025Q4

REPORT INFORMATION
  Report Type: Other
  Country: EU (occurrence: EU)
  Receive Date: 20251122
  Receipt Date: 20251122
  Transmission Date: 20260119
  Serious: Yes (Death)
  Sender: ZYDUS PHARM
  Company Number: None

PATIENT

DRUGS (3)
  1. BACLOFEN [Suspect]
     Active Substance: BACLOFEN
     Indication: Poisoning deliberate
     Dosage: 440 MG,1 TOTAL
     Route: 048
     Dates: start: 20250812, end: 20250812
  2. RISPERIDONE [Suspect]
     Active Substance: RISPERIDONE
     Indication: Poisoning deliberate
     Dosage: 60 MILLIGRAM,1 TOTAL
     Route: 048
     Dates: start: 20250812, end: 20250812
  3. CYAMEMAZINE [Suspect]
     Active Substance: CYAMEMAZINE
     Indication: Poisoning deliberate
     Dosage: 300 MILLIGRAM,1 TOTAL
     Route: 048
     Dates: start: 20250812, end: 20250812

REACTIONS (3)
  - Multiple organ dysfunction syndrome [Fatal]
  - Coma [Fatal]
  - Poisoning deliberate [Recovered/Resolved]

NARRATIVE: CASE EVENT DATE: 20250812
